FAERS Safety Report 4939325-X (Version None)
Quarter: 2006Q1

REPORT INFORMATION
  Report Type: 
  Country: None (occurrence: None)
  Receive Date: 20060306
  Receipt Date: 20060227
  Transmission Date: 20060701
  Serious: No
  Sender: FDA-Public Use
  Company Number: 2006-01-1762

PATIENT
  Age: 12 Year
  Sex: Male
  Weight: 43 kg

DRUGS (5)
  1. CELESTONE [Suspect]
     Indication: NASOPHARYNGITIS
     Dosage: 2 MG QD ORAL
     Route: 048
     Dates: start: 20060125, end: 20060128
  2. BETAMETHASONE SODIUM PHOSPHATE [Suspect]
     Indication: NASOPHARYNGITIS
     Dosage: 4 MG QD INHALATION
     Route: 055
     Dates: start: 20060125, end: 20060128
  3. GENTAMICIN SULFATE [Suspect]
     Dosage: 80 MG QD INHALATION
     Route: 055
     Dates: start: 20060125, end: 20060128
  4. AUGEMENTIN [Concomitant]
  5. GOMENOL (NIAOULI OIL) [Concomitant]

REACTIONS (2)
  - DELUSION [None]
  - SLEEP TERROR [None]
